FAERS Safety Report 6166826-1 (Version None)
Quarter: 2009Q2

REPORT INFORMATION
  Report Type: 
  Country: None (occurrence: None)
  Receive Date: 20090423
  Receipt Date: 20090423
  Transmission Date: 20091009
  Serious: No
  Sender: FDA-Public Use
  Company Number: None

PATIENT

DRUGS (1)
  1. HEPARIN [Suspect]
     Indication: CARDIAC OPERATION
     Dates: start: 20090415, end: 20090420

REACTIONS (2)
  - NO THERAPEUTIC RESPONSE [None]
  - PRODUCT MEASURED POTENCY ISSUE [None]
